FAERS Safety Report 7603949-1 (Version None)
Quarter: 2011Q3

REPORT INFORMATION
  Report Type: 
  Country: None (occurrence: None)
  Receive Date: 20110712
  Receipt Date: 20110708
  Transmission Date: 20111222
  Serious: Yes (Death)
  Sender: FDA-Public Use
  Company Number: JP-B.I. PHARMACEUTICALS,INC./RIDGEFIELD-2011-BP-15787NB

PATIENT
  Age: 79 Year
  Sex: Male

DRUGS (6)
  1. LANIRAPID [Concomitant]
     Indication: ATRIAL FIBRILLATION
     Dosage: 0.05 MG
     Route: 065
     Dates: end: 20110619
  2. NAPROXEN [Concomitant]
     Dosage: 300 MG
     Route: 048
     Dates: start: 20110612, end: 20110619
  3. ASPIRIN [Concomitant]
     Dosage: 100 MG
     Route: 065
     Dates: end: 20110619
  4. PRADAXA [Suspect]
     Indication: ATRIAL FIBRILLATION
     Dosage: 220 MG
     Route: 048
     Dates: start: 20110527, end: 20110619
  5. FAMOTIDINE [Concomitant]
     Dosage: 40 MG
     Route: 065
     Dates: start: 20110526, end: 20110619
  6. CORTRIL [Concomitant]
     Indication: ADRENAL INSUFFICIENCY
     Dosage: 15 MG
     Route: 065
     Dates: start: 20110516, end: 20110619

REACTIONS (1)
  - DISSEMINATED INTRAVASCULAR COAGULATION [None]
